FAERS Safety Report 25808974 (Version 3)
Quarter: 2025Q4

REPORT INFORMATION
  Report Type: Spontaneous
  Country: US (occurrence: US)
  Receive Date: 20250916
  Receipt Date: 20251214
  Transmission Date: 20260118
  Serious: Yes (Other)
  Sender: SANOFI AVENTIS
  Company Number: US-SA-2025SA276680

PATIENT
  Age: 58 Year
  Sex: Female

DRUGS (4)
  1. DUPIXENT [Suspect]
     Active Substance: DUPILUMAB
     Indication: Neurodermatitis
     Dosage: 600 MG, 1X
     Route: 058
     Dates: start: 202509, end: 202509
  2. DUPIXENT [Suspect]
     Active Substance: DUPILUMAB
     Dosage: 300 MG, QOW
     Route: 058
     Dates: start: 2025
  3. HIZENTRA [Suspect]
     Active Substance: HUMAN IMMUNOGLOBULIN G
     Dosage: UNK
  4. LEVAQUIN [Concomitant]
     Active Substance: LEVOFLOXACIN

REACTIONS (13)
  - Pneumonia [Unknown]
  - Illness [Unknown]
  - Bronchitis [Unknown]
  - Fatigue [Unknown]
  - Stress [Unknown]
  - Immune system disorder [Unknown]
  - Photopsia [Unknown]
  - Nausea [Unknown]
  - Muscle spasms [Unknown]
  - Photosensitivity reaction [Unknown]
  - Injection site mass [Recovered/Resolved]
  - Back pain [Unknown]
  - Headache [Unknown]

NARRATIVE: CASE EVENT DATE: 20250101
